FAERS Safety Report 9591954 (Version 3)
Quarter: 2013Q4

REPORT INFORMATION
  Report Type: Report from Study
  Country: US (occurrence: US)
  Receive Date: 20131004
  Receipt Date: 20131206
  Transmission Date: 20140711
  Serious: Yes (Other)
  Sender: FDA-Public Use
  Company Number: US-ROCHE-1266712

PATIENT
  Sex: Female
  Weight: 50.39 kg

DRUGS (5)
  1. XELODA [Suspect]
     Indication: BREAST CANCER METASTATIC
     Dosage: EVERY AM
     Route: 048
     Dates: start: 20130818
  2. XELODA [Suspect]
     Dosage: EVERY PM
     Route: 048
     Dates: start: 20130819
  3. XELODA [Suspect]
     Dosage: EVERY AM
     Route: 048
     Dates: start: 20130819
  4. XELODA [Suspect]
     Route: 048
     Dates: start: 20130819
  5. ASPIRIN [Concomitant]
     Route: 048

REACTIONS (13)
  - Thrombosis [Not Recovered/Not Resolved]
  - Flushing [Not Recovered/Not Resolved]
  - Nausea [Not Recovered/Not Resolved]
  - Abdominal pain upper [Recovered/Resolved with Sequelae]
  - Erythema [Not Recovered/Not Resolved]
  - Corneal erosion [Not Recovered/Not Resolved]
  - Dry eye [Not Recovered/Not Resolved]
  - Eye pain [Not Recovered/Not Resolved]
  - Eye irritation [Not Recovered/Not Resolved]
  - Ocular hyperaemia [Not Recovered/Not Resolved]
  - Visual acuity reduced [Not Recovered/Not Resolved]
  - Dry skin [Unknown]
  - Hyperkeratosis [Unknown]
